APPROVED DRUG PRODUCT: ISOSORBIDE MONONITRATE
Active Ingredient: ISOSORBIDE MONONITRATE
Strength: 20MG
Dosage Form/Route: TABLET;ORAL
Application: A075361 | Product #001
Applicant: HIKMA PHARMACEUTICALS
Approved: Oct 5, 2000 | RLD: No | RS: No | Type: DISCN